FAERS Safety Report 5837322-3 (Version None)
Quarter: 2008Q3

REPORT INFORMATION
  Report Type: 
  Country: None (occurrence: None)
  Receive Date: 20080731
  Receipt Date: 20080610
  Transmission Date: 20090109
  Serious: No
  Sender: FDA-Public Use
  Company Number: US200806002533

PATIENT
  Age: 69 Year
  Sex: Male
  Weight: 95.2 kg

DRUGS (6)
  1. BYETTA [Suspect]
     Indication: TYPE 2 DIABETES MELLITUS
     Dosage: 5 UG, 2/D, SUBCUTANEOUS; 10 UG, 2/D, SUBCUTANEOUS
     Route: 058
     Dates: start: 20080423, end: 20080501
  2. BYETTA [Suspect]
     Indication: TYPE 2 DIABETES MELLITUS
     Dosage: 5 UG, 2/D, SUBCUTANEOUS; 10 UG, 2/D, SUBCUTANEOUS
     Route: 058
     Dates: start: 20080521
  3. EXENATIDE PEN [Concomitant]
  4. DISPOSABLE DEVICE (EXENATIDE PEN) [Concomitant]
  5. GLUCOPHAGE/USA/(METFORMIN HYDROCHLORIDE) [Concomitant]
  6. ACTOS [Concomitant]

REACTIONS (7)
  - DECREASED APPETITE [None]
  - DYSGEUSIA [None]
  - FATIGUE [None]
  - FLATULENCE [None]
  - INSOMNIA [None]
  - NAUSEA [None]
  - WEIGHT DECREASED [None]
